FAERS Safety Report 17743627 (Version 1)
Quarter: 2020Q2

REPORT INFORMATION
  Report Type: Spontaneous
  Country: ES (occurrence: ES)
  Receive Date: 20200505
  Receipt Date: 20200505
  Transmission Date: 20200714
  Serious: Yes (Hospitalization)
  Sender: FDA-Public Use
  Company Number: ES-SUN PHARMACEUTICAL INDUSTRIES LTD-2020RR-246048

PATIENT
  Age: 52 Year
  Sex: Female

DRUGS (3)
  1. AZITHROMYCIN ANHYDROUS. [Suspect]
     Active Substance: AZITHROMYCIN ANHYDROUS
     Indication: PNEUMONIA
     Dosage: 500 MG DIA
     Route: 048
     Dates: start: 20200321, end: 20200326
  2. CEFTRIAXONA [Suspect]
     Active Substance: CEFTRIAXONE
     Indication: PNEUMONIA
     Dosage: 2 G DIA
     Route: 042
     Dates: start: 20200321, end: 20200326
  3. DOLQUINE 200 MG COMPRIMIDOS RECUBIERTOS, 30 COMPRIMIDOS [Suspect]
     Active Substance: HYDROXYCHLOROQUINE SULFATE
     Indication: PNEUMONIA
     Dosage: 400 MG DIA
     Route: 048
     Dates: start: 20200321, end: 20200327

REACTIONS (2)
  - Condition aggravated [Unknown]
  - Hepatitis cholestatic [Unknown]

NARRATIVE: CASE EVENT DATE: 20200326
